FAERS Safety Report 17517248 (Version 1)
Quarter: 2020Q1

REPORT INFORMATION
  Report Type: Spontaneous
  Country: US (occurrence: US)
  Receive Date: 20200308
  Receipt Date: 20200308
  Transmission Date: 20200409
  Serious: No
  Sender: FDA-Public Use
  Company Number: None

PATIENT
  Age: 69 Year
  Sex: Female
  Weight: 90 kg

DRUGS (18)
  1. HYDRALAZINE [Concomitant]
     Active Substance: HYDRALAZINE HYDROCHLORIDE
  2. VIT. D3 [Concomitant]
  3. FISH OIL [Concomitant]
     Active Substance: FISH OIL
  4. MAGNESIUM [Concomitant]
     Active Substance: MAGNESIUM
  5. ASPIRIN. [Concomitant]
     Active Substance: ASPIRIN
  6. TYLENOL [Concomitant]
     Active Substance: ACETAMINOPHEN
  7. ZINC. [Concomitant]
     Active Substance: ZINC
  8. VITAMIN E [Concomitant]
     Active Substance: .ALPHA.-TOCOPHEROL
  9. JOINT HEALTH [Concomitant]
  10. MONTELUKAST [Suspect]
     Active Substance: MONTELUKAST SODIUM
     Indication: HYPERSENSITIVITY
     Dosage: ?          QUANTITY:1 TABLET(S);?
     Route: 048
  11. CARVEDILOL. [Concomitant]
     Active Substance: CARVEDILOL
  12. ATORVASTATIN [Concomitant]
     Active Substance: ATORVASTATIN
  13. MULTI. [Concomitant]
  14. COENZYME Q10 [Concomitant]
     Active Substance: UBIDECARENONE
  15. TUMERIC [Concomitant]
     Active Substance: HERBALS\TURMERIC
  16. FUROSEMIDE. [Concomitant]
     Active Substance: FUROSEMIDE
  17. VIT. B [Concomitant]
  18. FOLIC ACID. [Concomitant]
     Active Substance: FOLIC ACID

REACTIONS (2)
  - Social avoidant behaviour [None]
  - Depressed mood [None]
